FAERS Safety Report 23439501 (Version 1)
Quarter: 2024Q1

REPORT INFORMATION
  Report Type: Spontaneous
  Country: US (occurrence: US)
  Receive Date: 20240124
  Receipt Date: 20240124
  Transmission Date: 20240409
  Serious: No
  Sender: FDA-Public Use
  Company Number: US-SA-SAC20240118000663

PATIENT
  Age: 12 Year
  Sex: Male

DRUGS (1)
  1. DUPIXENT [Suspect]
     Active Substance: DUPILUMAB
     Indication: Dermatitis atopic
     Dosage: 200 MG, QOW
     Route: 058

REACTIONS (15)
  - Dry skin [Unknown]
  - Sleep disorder [Unknown]
  - Upper limb fracture [Unknown]
  - Nerve compression [Unknown]
  - Fall [Unknown]
  - Condition aggravated [Unknown]
  - Pain [Unknown]
  - Pustule [Unknown]
  - Skin ulcer [Unknown]
  - Skin fissures [Unknown]
  - Skin haemorrhage [Unknown]
  - Skin swelling [Unknown]
  - Rash [Unknown]
  - Bloody discharge [Unknown]
  - Pruritus [Unknown]
